FAERS Safety Report 5020291-6 (Version None)
Quarter: 2006Q2

REPORT INFORMATION
  Report Type: 
  Country: None (occurrence: None)
  Receive Date: 20060602
  Receipt Date: 20060512
  Transmission Date: 20061013
  Serious: Yes (Other)
  Sender: FDA-Public Use
  Company Number: ZA200605003354

PATIENT
  Age: 13 Year
  Sex: Male

DRUGS (2)
  1. STRATTERA [Suspect]
     Indication: ATTENTION DEFICIT/HYPERACTIVITY DISORDER
     Dosage: 25 + 60MG, 2/D, ORAL
     Route: 048
     Dates: start: 20060406
  2. STRATTERA [Suspect]
     Indication: ATTENTION DEFICIT/HYPERACTIVITY DISORDER
     Dosage: 25 + 60MG, 2/D, ORAL
     Route: 048
     Dates: start: 20060413

REACTIONS (5)
  - CONVULSION [None]
  - FALL [None]
  - INCORRECT DOSE ADMINISTERED [None]
  - SYNCOPE [None]
  - TREATMENT NONCOMPLIANCE [None]
